FAERS Safety Report 16863664 (Version 3)
Quarter: 2019Q4

REPORT INFORMATION
  Report Type: Report from Study
  Country: US (occurrence: US)
  Receive Date: 20190927
  Receipt Date: 20191015
  Transmission Date: 20200122
  Serious: Yes (Other)
  Sender: FDA-Public Use
  Company Number: US-GLAXOSMITHKLINE-US2019TSO170823

PATIENT
  Sex: Female
  Weight: 54.38 kg

DRUGS (1)
  1. NIRAPARIB [Suspect]
     Active Substance: NIRAPARIB
     Indication: OVARIAN CANCER
     Dosage: 200 MG, QPM WITH FOOD
     Route: 048
     Dates: start: 20190911

REACTIONS (15)
  - Sleep disorder [Unknown]
  - Hypophagia [Unknown]
  - Feeling hot [Unknown]
  - Vomiting [Unknown]
  - Hyperhidrosis [Unknown]
  - Gastrooesophageal reflux disease [Unknown]
  - Full blood count decreased [Unknown]
  - Blood pressure increased [Not Recovered/Not Resolved]
  - Hypotension [Recovered/Resolved]
  - Dizziness [Unknown]
  - Nausea [Unknown]
  - Rectal haemorrhage [Recovered/Resolved]
  - Flatulence [Unknown]
  - Headache [Unknown]
  - Asthenia [Unknown]
